FAERS Safety Report 8328999-1 (Version None)
Quarter: 2012Q2

REPORT INFORMATION
  Report Type: 
  Country: None (occurrence: None)
  Receive Date: 20120502
  Receipt Date: 20120423
  Transmission Date: 20120825
  Serious: Yes (Hospitalization)
  Sender: FDA-Public Use
  Company Number: US-JNJFOC-20120406817

PATIENT
  Sex: Female
  Weight: 68.04 kg

DRUGS (7)
  1. XARELTO [Suspect]
     Indication: CEREBROVASCULAR ACCIDENT PROPHYLAXIS
     Route: 048
     Dates: start: 20120405
  2. SIMVASTATIN [Concomitant]
     Route: 048
  3. BETAXOLOL [Concomitant]
     Route: 047
  4. SOTALOL HCL [Concomitant]
     Route: 048
  5. XARELTO [Suspect]
     Indication: ATRIAL FIBRILLATION
     Route: 048
     Dates: start: 20120405
  6. HYDROCHLOROTHIAZIDE [Concomitant]
     Route: 048
  7. HYDROMORPHONE HCL [Concomitant]
     Indication: PAIN
     Route: 048

REACTIONS (1)
  - POST PROCEDURAL HAEMORRHAGE [None]
